FAERS Safety Report 4570205-8 (Version None)
Quarter: 2005Q1

REPORT INFORMATION
  Report Type: 
  Country: None (occurrence: None)
  Receive Date: 20050126
  Receipt Date: 20050126
  Transmission Date: 20050727
  Serious: Yes (Other)
  Sender: FDA-Public Use
  Company Number: None

PATIENT
  Age: 71 Year
  Sex: Male
  Weight: 61.2356 kg

DRUGS (2)
  1. METOPROLOL [Suspect]
     Indication: HYPERTENSION
     Dosage: 75 MG BID
     Dates: start: 20041119, end: 20041124
  2. PREDNISONE [Suspect]
     Indication: GOUT
     Dosage: TAPERING DOSE
     Dates: start: 20041121

REACTIONS (4)
  - ANAEMIA [None]
  - DIZZINESS [None]
  - FALL [None]
  - HYPOTENSION [None]
